FAERS Safety Report 9715972 (Version 3)
Quarter: 2013Q4

REPORT INFORMATION
  Report Type: Spontaneous
  Country: US (occurrence: US)
  Receive Date: 20131127
  Receipt Date: 20131210
  Transmission Date: 20140711
  Serious: Yes (Hospitalization)
  Sender: FDA-Public Use
  Company Number: US-DRREDDYS-USA/USA/13/0035778

PATIENT
  Age: 78 Year
  Sex: Female

DRUGS (5)
  1. CETIRIZINE [Suspect]
     Indication: HYPERSENSITIVITY
     Route: 065
     Dates: start: 20131120, end: 20131120
  2. TENORMIN [Concomitant]
     Indication: HYPERTENSION
     Route: 065
  3. CLONIDINE [Concomitant]
     Indication: HYPERTENSION
     Route: 065
  4. PREMARIN [Concomitant]
     Indication: MENOPAUSAL SYMPTOMS
     Route: 065
  5. PREMARIN [Concomitant]
     Indication: OESTROGEN REPLACEMENT THERAPY

REACTIONS (2)
  - Extra dose administered [Unknown]
  - Somnolence [Recovered/Resolved]
